FAERS Safety Report 15759772 (Version 2)
Quarter: 2020Q2

REPORT INFORMATION
  Report Type: Report from Study
  Country: US (occurrence: US)
  Receive Date: 20181226
  Receipt Date: 20200629
  Transmission Date: 20200713
  Serious: Yes (Hospitalization)
  Sender: FDA-Public Use
  Company Number: US-ROCHE-2232830

PATIENT
  Age: 54 Year
  Sex: Female
  Weight: 83.99 kg

DRUGS (11)
  1. OCREVUS [Suspect]
     Active Substance: OCRELIZUMAB
     Indication: RELAPSING-REMITTING MULTIPLE SCLEROSIS
     Dosage: ONGOING-YES
     Route: 042
     Dates: start: 20181213
  2. MIRAPEX [Concomitant]
     Active Substance: PRAMIPEXOLE DIHYDROCHLORIDE
     Indication: RESTLESS LEGS SYNDROME
     Dosage: ONGOING: YES
     Route: 048
     Dates: start: 2010
  3. GABAPENTIN. [Concomitant]
     Active Substance: GABAPENTIN
     Indication: PARAESTHESIA
  4. TIZANIDINE. [Concomitant]
     Active Substance: TIZANIDINE
     Indication: MUSCLE SPASMS
     Dosage: ONGOING: YES
     Route: 048
     Dates: start: 2010
  5. BACLOFEN. [Concomitant]
     Active Substance: BACLOFEN
     Indication: MUSCLE SPASMS
     Dosage: ONGOING: YES
     Route: 048
     Dates: start: 2008
  6. ADDERALL [Concomitant]
     Active Substance: AMPHETAMINE ASPARTATE\AMPHETAMINE SULFATE\DEXTROAMPHETAMINE SACCHARATE\DEXTROAMPHETAMINE SULFATE
     Indication: FATIGUE
     Dosage: ONGOING: YES
     Route: 048
     Dates: start: 2010
  7. OCREVUS [Suspect]
     Active Substance: OCRELIZUMAB
     Route: 042
     Dates: start: 201812
  8. GABAPENTIN. [Concomitant]
     Active Substance: GABAPENTIN
     Indication: HYPOAESTHESIA
     Dosage: ONGOING: YES
     Route: 048
     Dates: start: 2008
  9. CLONAZEPAM. [Concomitant]
     Active Substance: CLONAZEPAM
     Indication: MYALGIA
     Dosage: ONGOING: YES
     Route: 048
     Dates: start: 2010
  10. BETASERON [Concomitant]
     Active Substance: INTERFERON BETA-1B
  11. COPAXONE [Concomitant]
     Active Substance: GLATIRAMER ACETATE
     Indication: MULTIPLE SCLEROSIS

REACTIONS (12)
  - Balance disorder [Unknown]
  - Disturbance in attention [Unknown]
  - Nasopharyngitis [Unknown]
  - Aphonia [Unknown]
  - Pain in extremity [Unknown]
  - Dizziness [Recovered/Resolved]
  - Multiple sclerosis relapse [Unknown]
  - Headache [Recovered/Resolved]
  - Gait disturbance [Unknown]
  - Muscular weakness [Unknown]
  - Chest discomfort [Recovered/Resolved]
  - Heart rate increased [Recovered/Resolved]

NARRATIVE: CASE EVENT DATE: 20181213
